FAERS Safety Report 20919961 (Version 1)
Quarter: 2022Q2

REPORT INFORMATION
  Report Type: Spontaneous
  Country: US (occurrence: None)
  Receive Date: 20220604
  Receipt Date: 20220604
  Transmission Date: 20220721
  Serious: No
  Sender: FDA-Public Use
  Company Number: None

PATIENT
  Age: 61 Year
  Sex: Female
  Weight: 66.22 kg

DRUGS (6)
  1. IBRANCE [Suspect]
     Active Substance: PALBOCICLIB
     Indication: Breast cancer female
     Dosage: OTHER FREQUENCY : QD 21/7;?
     Route: 048
     Dates: end: 20220601
  2. CALTRATE + D3 [Concomitant]
  3. FASLODEX [Concomitant]
     Active Substance: FULVESTRANT
  4. OMEPRAZOLE [Concomitant]
     Active Substance: OMEPRAZOLE
  5. VOLTAREN [Concomitant]
     Active Substance: DICLOFENAC SODIUM
  6. XGEVA [Concomitant]
     Active Substance: DENOSUMAB

REACTIONS (1)
  - COVID-19 [None]

NARRATIVE: CASE EVENT DATE: 20220601
